FAERS Safety Report 18877342 (Version 2)
Quarter: 2021Q1

REPORT INFORMATION
  Report Type: Spontaneous
  Country: PT (occurrence: PT)
  Receive Date: 20210211
  Receipt Date: 20210222
  Transmission Date: 20210420
  Serious: Yes (Hospitalization, Other)
  Sender: FDA-Public Use
  Company Number: PT-TEVA-2021-PT-1877314

PATIENT
  Age: 53 Year
  Sex: Female

DRUGS (2)
  1. IBUPROFEN. [Suspect]
     Active Substance: IBUPROFEN
     Indication: ARTHRALGIA
     Dosage: 1800 MILLIGRAM DAILY; 8?8HOURS
     Route: 048
  2. LITHIUM. [Interacting]
     Active Substance: LITHIUM
     Indication: ARTHRALGIA
     Route: 048

REACTIONS (2)
  - Toxicity to various agents [Recovered/Resolved with Sequelae]
  - Drug interaction [Recovered/Resolved with Sequelae]
